FAERS Safety Report 6869607-6 (Version None)
Quarter: 2010Q3

REPORT INFORMATION
  Report Type: 
  Country: None (occurrence: None)
  Receive Date: 20100722
  Receipt Date: 20080810
  Transmission Date: 20110219
  Serious: No
  Sender: FDA-Public Use
  Company Number: US-PFIZER INC-2008067668

PATIENT
  Sex: Female
  Weight: 54.5 kg

DRUGS (4)
  1. CHANTIX [Suspect]
     Dates: start: 20080801
  2. PROTONIX [Concomitant]
  3. PREVACID [Concomitant]
  4. TRAMADOL [Concomitant]

REACTIONS (3)
  - DRUG DOSE OMISSION [None]
  - NAUSEA [None]
  - VOMITING [None]
